FAERS Safety Report 9708623 (Version 2)
Quarter: 2013Q4

REPORT INFORMATION
  Report Type: Spontaneous
  Country: US (occurrence: US)
  Receive Date: 20131125
  Receipt Date: 20131127
  Transmission Date: 20140711
  Serious: Yes (Hospitalization, Other)
  Sender: FDA-Public Use
  Company Number: US-BAYER-2013-143152

PATIENT
  Age: 60 Year
  Sex: Female

DRUGS (8)
  1. LEPIRUDIN [Suspect]
     Indication: ANTICOAGULANT THERAPY
  2. RITUXIMAB [Concomitant]
     Indication: IMMUNOSUPPRESSION
     Dosage: 375 MG/M2, OW
  3. VITAMIN K [Concomitant]
     Indication: HEPARIN-INDUCED THROMBOCYTOPENIA
  4. ARGATROBAN [Concomitant]
     Indication: HEPARIN-INDUCED THROMBOCYTOPENIA
  5. PLASMA [Concomitant]
     Indication: HEPARIN-INDUCED THROMBOCYTOPENIA
  6. ALBUMIN [Concomitant]
  7. HEPARIN [Concomitant]
  8. WARFARIN [Concomitant]

REACTIONS (3)
  - Gangrene [Recovered/Resolved]
  - Renal failure acute [None]
  - Thrombocytopenia [None]
